FAERS Safety Report 8112026-5 (Version None)
Quarter: 2012Q1

REPORT INFORMATION
  Report Type: 
  Country: None (occurrence: None)
  Receive Date: 20120203
  Receipt Date: 20120127
  Transmission Date: 20120608
  Serious: Yes (Other)
  Sender: FDA-Public Use
  Company Number: US-BAYER-2011-048486

PATIENT
  Age: 20 Year
  Sex: Female
  Weight: 70 kg

DRUGS (6)
  1. ANTIBIOTICS [Concomitant]
  2. NPO [Concomitant]
  3. I.V. SOLUTIONS [Concomitant]
  4. YASMIN [Suspect]
     Indication: PREMENSTRUAL SYNDROME
     Dosage: UNK
     Dates: start: 20040101
  5. AVELOX [Concomitant]
  6. CEPHALEXIN [Concomitant]
     Indication: VAGINAL INFECTION
     Dosage: 250 MG, UNK

REACTIONS (6)
  - PANCREATITIS ACUTE [None]
  - CHOLECYSTITIS CHRONIC [None]
  - PAIN [None]
  - GALLBLADDER DISORDER [None]
  - PNEUMONIA [None]
  - INJURY [None]
